FAERS Safety Report 7215227-3 (Version None)
Quarter: 2011Q1

REPORT INFORMATION
  Report Type: 
  Country: None (occurrence: None)
  Receive Date: 20110107
  Receipt Date: 20101223
  Transmission Date: 20110831
  Serious: No
  Sender: FDA-Public Use
  Company Number: A0891474A

PATIENT
  Sex: Male

DRUGS (2)
  1. DOXYCYCLINE [Suspect]
     Indication: ACNE
     Route: 065
     Dates: end: 20101118
  2. LOVAZA [Suspect]
     Route: 048
     Dates: start: 20100330, end: 20101001

REACTIONS (6)
  - ORAL PAIN [None]
  - ORAL FUNGAL INFECTION [None]
  - NECK PAIN [None]
  - BACK PAIN [None]
  - HYPOAESTHESIA ORAL [None]
  - HEADACHE [None]
